FAERS Safety Report 9448379 (Version 2)
Quarter: 2013Q3

REPORT INFORMATION
  Report Type: Report from Study
  Country: LB (occurrence: LB)
  Receive Date: 20130808
  Receipt Date: 20130813
  Transmission Date: 20140515
  Serious: Yes (Life-Threatening, Hospitalization, Other)
  Sender: FDA-Public Use
  Company Number: LB-SANOFI-AVENTIS-2013SA078654

PATIENT
  Age: 63 Year
  Sex: Male

DRUGS (13)
  1. LANTUS SOLOSTAR [Suspect]
     Indication: TYPE 2 DIABETES MELLITUS
     Route: 058
     Dates: start: 201307
  2. EPANUTIN [Concomitant]
     Route: 048
  3. CORVASAL [Concomitant]
     Route: 048
  4. NEURONTIN [Concomitant]
     Route: 048
  5. PARIET [Concomitant]
     Route: 048
  6. BUSCOPAN [Concomitant]
     Route: 048
  7. ALDACTONE [Concomitant]
     Route: 048
  8. VASTAREL [Concomitant]
     Route: 048
  9. SINTROM [Concomitant]
     Route: 048
  10. ASPIRIN [Concomitant]
     Route: 048
  11. LASIX [Concomitant]
     Route: 048
  12. ESCITALOPRAM [Concomitant]
  13. DILATREND [Concomitant]
     Route: 048

REACTIONS (1)
  - Hypoglycaemia [Recovered/Resolved]
